FAERS Safety Report 18427107 (Version 1)
Quarter: 2020Q4

REPORT INFORMATION
  Report Type: Spontaneous
  Country: US (occurrence: US)
  Receive Date: 20201026
  Receipt Date: 20201026
  Transmission Date: 20210114
  Serious: Yes (Death)
  Sender: FDA-Public Use
  Company Number: None

PATIENT
  Age: 73 Year
  Sex: Female

DRUGS (4)
  1. OXYCODONE 5 MG IMMEDIATE RELEASE TABLET [Concomitant]
     Dates: start: 20200914
  2. PANTOPRAZOLE 40 MG TABLET [Concomitant]
     Active Substance: PANTOPRAZOLE
     Dates: start: 20200301
  3. OCTREOTIDE. [Suspect]
     Active Substance: OCTREOTIDE
     Indication: GASTROINTESTINAL NEOPLASM
     Route: 058
     Dates: start: 20200707, end: 20200728
  4. CALCIUM ACETATE 667 MG CAPSULES [Concomitant]
     Dates: start: 20190211

REACTIONS (1)
  - Death [None]

NARRATIVE: CASE EVENT DATE: 20201023
